FAERS Safety Report 4377575-4 (Version None)
Quarter: 2004Q2

REPORT INFORMATION
  Report Type: 
  Country: None (occurrence: None)
  Receive Date: 20040601
  Receipt Date: 20040126
  Transmission Date: 20050107
  Serious: No
  Sender: FDA-Public Use
  Company Number: WAES 0401USA01899

PATIENT
  Age: 42 Year
  Sex: Female
  Weight: 68.9467 kg

DRUGS (1)
  1. ZETIA [Suspect]
     Dosage: 10 MG/DAILY/PO
     Route: 048
     Dates: start: 20031001, end: 20040101

REACTIONS (1)
  - HEPATIC ENZYME INCREASED [None]
